FAERS Safety Report 10914410 (Version 1)
Quarter: 2015Q1

REPORT INFORMATION
  Report Type: Spontaneous
  Country: US (occurrence: None)
  Receive Date: 20150311
  Receipt Date: 20150311
  Transmission Date: 20150721
  Serious: Yes (Other)
  Sender: FDA-Public Use
  Company Number: FK201501071

PATIENT
  Age: 62 Year
  Sex: Female

DRUGS (3)
  1. RITUXIMAB (RITUXIMAB) (RITUXIMAB) [Suspect]
     Active Substance: RITUXIMAB
     Indication: LYMPHOCYTIC INFILTRATION
     Dosage: CYCLICAL
  2. DEXAMETHASONE (DEXAMETHASONE) [Concomitant]
     Active Substance: DEXAMETHASONE
  3. METHOTREXATE (MANUFACTURER UNKNOWN) (METHOTREXATE) (METHOTREXATE) [Suspect]
     Active Substance: METHOTREXATE
     Indication: LYMPHOCYTIC INFILTRATION
     Dosage: CYCLICAL

REACTIONS (5)
  - Hydrocephalus [None]
  - Transaminases increased [None]
  - Acute kidney injury [None]
  - Confusional state [None]
  - Pancytopenia [None]
